FAERS Safety Report 5858845-7 (Version None)
Quarter: 2008Q3

REPORT INFORMATION
  Report Type: 
  Country: None (occurrence: None)
  Receive Date: 20080826
  Receipt Date: 20080818
  Transmission Date: 20090109
  Serious: Yes (Other)
  Sender: FDA-Public Use
  Company Number: JP-ABBOTT-08P-087-0449173-00

PATIENT
  Age: 80 Year
  Sex: Male

DRUGS (6)
  1. LEUPROLIDE ACETATE [Suspect]
     Indication: PROSTATE CANCER STAGE III
     Route: 058
     Dates: start: 20060220
  2. LEUPROLIDE ACETATE [Suspect]
     Dates: start: 20050829, end: 20060123
  3. FLUTAMIDE [Suspect]
     Indication: PROSTATE CANCER STAGE III
     Route: 048
     Dates: start: 20060807, end: 20060904
  4. ESTRAMUSTINE PHOSPHATE SODIUM [Suspect]
     Indication: PROSTATE CANCER STAGE III
     Route: 048
     Dates: start: 20061013, end: 20070920
  5. ESTRAMUSTINE PHOSPHATE SODIUM [Suspect]
     Route: 048
     Dates: start: 20070921
  6. BICALUTAMIDE [Concomitant]
     Indication: PROSTATE CANCER STAGE III
     Route: 048
     Dates: end: 20060807

REACTIONS (4)
  - GASTRITIS [None]
  - HEPATIC FUNCTION ABNORMAL [None]
  - PROSTATIC SPECIFIC ANTIGEN INCREASED [None]
  - URINARY RETENTION [None]
